FAERS Safety Report 18083243 (Version 1)
Quarter: 2020Q3

REPORT INFORMATION
  Report Type: Spontaneous
  Country: FR (occurrence: FR)
  Receive Date: 20200729
  Receipt Date: 20200729
  Transmission Date: 20201103
  Serious: Yes (Death, Other)
  Sender: FDA-Public Use
  Company Number: FR-PFIZER INC-2020283027

PATIENT
  Age: 85 Year
  Sex: Female
  Weight: 55 kg

DRUGS (11)
  1. TAZOCILLINE [Suspect]
     Active Substance: PIPERACILLIN SODIUM\TAZOBACTAM SODIUM
     Indication: OSTEOMYELITIS BACTERIAL
     Dosage: 4 G, 3X/DAY (EVERY 8 HRS)
     Route: 042
     Dates: start: 20200525, end: 20200619
  2. SKENAN [Concomitant]
     Active Substance: MORPHINE SULFATE
     Dosage: 10 MBQ, 2X/DAY (EVERY 12 HRS)
     Route: 048
  3. CALCIDOSE [CALCIUM CARBONATE;COLECALCIFEROL] [Concomitant]
     Active Substance: CALCIUM CARBONATE\CHOLECALCIFEROL
     Dosage: 500 MG, 1X/DAY
     Route: 048
  4. LOVENOX [Concomitant]
     Active Substance: ENOXAPARIN SODIUM
     Dosage: 4000 IU, 2X/DAY (EVERY 12 HRS)
     Route: 058
  5. PARACETAMOL [Concomitant]
     Active Substance: ACETAMINOPHEN
     Indication: PAIN
     Dosage: 1 G (MORNING NOON EVENING IF THERE IS PAIN)
     Route: 048
  6. ACTISKENAN [Concomitant]
     Active Substance: MORPHINE SULFATE
     Indication: PAIN
     Dosage: 5 MG (EVERY 6 DAYS AT 3 HOUR INTERVALS IF PAIN)
     Route: 048
  7. EUPANTOL [Concomitant]
     Active Substance: PANTOPRAZOLE SODIUM
     Dosage: 40 MBQ, 1X/DAY
     Route: 048
  8. MOVICOL [Concomitant]
     Active Substance: POLYETHYLENE GLYCOL 3350\POTASSIUM CHLORIDE\SODIUM BICARBONATE\SODIUM CHLORIDE
     Dosage: 2 DF, 1X/DAY (2 PACKETS IN THE MORNING)
     Route: 048
  9. HEMIGOXINE NATIVELLE [Concomitant]
     Active Substance: DIGOXIN
     Dosage: 0.13 MG, 1X/DAY(SAUF LE DIMANCHE/ EXCEPT SUNDAY)
     Route: 048
  10. BISOPROLOL FUMARATE. [Concomitant]
     Active Substance: BISOPROLOL FUMARATE
     Dosage: 7.5 MG, 1X/DAY
     Route: 048
  11. CORTANCYL [Concomitant]
     Active Substance: PREDNISONE
     Dosage: 4 MBQ, 1X/DAY
     Route: 048

REACTIONS (2)
  - Death [Fatal]
  - Neutropenia [Recovered/Resolved]

NARRATIVE: CASE EVENT DATE: 20200612
